FAERS Safety Report 13617738 (Version 1)
Quarter: 2017Q2

REPORT INFORMATION
  Report Type: Spontaneous
  Country: US (occurrence: US)
  Receive Date: 20170606
  Receipt Date: 20170606
  Transmission Date: 20170830
  Serious: No
  Sender: FDA-Public Use
  Company Number: US-SA-2017SA018278

PATIENT
  Age: 63 Year
  Sex: Female

DRUGS (28)
  1. LANTUS SOLOSTAR [Suspect]
     Active Substance: INSULIN GLARGINE
     Indication: TYPE 2 DIABETES MELLITUS
     Dosage: DOSE: 32 AM; 35 BEDTIME
     Route: 065
     Dates: start: 20151224
  2. CITALOPRAM [Concomitant]
     Active Substance: CITALOPRAM HYDROBROMIDE
     Indication: ANHEDONIA
  3. FEXOFENADINE HYDROCHLORIDE. [Concomitant]
     Active Substance: FEXOFENADINE HYDROCHLORIDE
     Indication: SINUS DISORDER
  4. OMEPRAZOLE. [Concomitant]
     Active Substance: OMEPRAZOLE
     Dosage: 1 2 X DAY (STARTED DURING CHEMO/RADIATION
  5. HYDROCODONE W/ACETAMINOPHEN [Concomitant]
     Active Substance: ACETAMINOPHEN\HYDROCODONE BITARTRATE
     Dosage: 1 OR 2 ONLY AS NEEDED
  6. TAXOL [Concomitant]
     Active Substance: PACLITAXEL
     Indication: CHEMOTHERAPY
     Dates: start: 20141216, end: 20150120
  7. CARBOPLATIN. [Concomitant]
     Active Substance: CARBOPLATIN
     Indication: CHEMOTHERAPY
     Dates: start: 20141216, end: 20150120
  8. CLINDAMYCIN. [Concomitant]
     Active Substance: CLINDAMYCIN
     Dosage: 1 HOUR PRIOR TO ANY DENTAL ABD/OR INVASIVE PROCEDURE
  9. ASPIRIN. [Concomitant]
     Active Substance: ASPIRIN
  10. LEVOTHYROXINE. [Concomitant]
     Active Substance: LEVOTHYROXINE
     Indication: THYROID DISORDER
     Dosage: BEFORE BREAKFAST
  11. OCUVITE [Concomitant]
     Active Substance: VITAMINS
  12. MUGARD MOUTHWASH [Concomitant]
     Dosage: 1 TSP 3 X DAILY
     Route: 048
     Dates: start: 20141216, end: 20150220
  13. NOVOLOG [Concomitant]
     Active Substance: INSULIN ASPART
     Dosage: AT MEALS, WITH SLIDING SCALE OF 1 UNIT PER 50 READ, BASED ON SUGAR LEVEL BEFORE MEAL DOSE:6 UNIT(S)
  14. FLEXPEN [Concomitant]
     Active Substance: UNSPECIFIED INGREDIENT
  15. ZOLPIDEM TARTRATE. [Concomitant]
     Active Substance: ZOLPIDEM TARTRATE
     Indication: SLEEP DISORDER
  16. SOLOSTAR [Suspect]
     Active Substance: DEVICE
     Indication: TYPE 2 DIABETES MELLITUS
     Dates: start: 20151224
  17. ATORVASTATIN [Concomitant]
     Active Substance: ATORVASTATIN
     Indication: BLOOD CHOLESTEROL
  18. LISINOPRIL. [Concomitant]
     Active Substance: LISINOPRIL
  19. METOPROLOL TARTRATE. [Concomitant]
     Active Substance: METOPROLOL TARTRATE
     Indication: ATRIAL FIBRILLATION
  20. LANTUS SOLOSTAR [Suspect]
     Active Substance: INSULIN GLARGINE
     Indication: TYPE 2 DIABETES MELLITUS
     Dosage: DOSE: 32 AM; 35 BEDTIME
     Route: 065
     Dates: start: 20151224
  21. TYLENOL [Concomitant]
     Active Substance: ACETAMINOPHEN
     Dosage: APPROXIMATELY 1 HOUR BEFORE BREAKFAST
  22. CORTISONE [Concomitant]
     Active Substance: CORTISONE\HYDROCORTISONE
  23. VITAMIN D3 [Concomitant]
     Active Substance: CHOLECALCIFEROL
     Indication: VITAMIN D DEFICIENCY
  24. PROCHLORPERAZINE. [Concomitant]
     Active Substance: PROCHLORPERAZINE
     Indication: NAUSEA
     Dosage: 1/2 TO 1 EVERY 6 HRS. AS NEEDED
     Dates: start: 20141223
  25. XYLOXYLIN [Concomitant]
     Dosage: 1 TBSP BEFORE MEALS AND BEDTIME AS NEEDED
  26. SOLOSTAR [Suspect]
     Active Substance: DEVICE
     Indication: TYPE 2 DIABETES MELLITUS
     Dates: start: 20151224
  27. TYLENOL ARTHRITIS PAIN [Concomitant]
     Active Substance: ACETAMINOPHEN
  28. VITAMIN B COMPLEX [Concomitant]
     Active Substance: CYANOCOBALAMIN\DEXPANTHENOL\NIACINAMIDE\PYRIDOXINE HYDROCHLORIDE\RIBOFLAVIN 5^-PHOSPHATE SODIUM\THIAMINE HYDROCHLORIDE\VITAMIN B COMPLEX

REACTIONS (3)
  - Product use issue [Unknown]
  - Headache [Unknown]
  - Malaise [Unknown]

NARRATIVE: CASE EVENT DATE: 20151224
